FAERS Safety Report 22888473 (Version 5)
Quarter: 2025Q2

REPORT INFORMATION
  Report Type: Report from Study
  Country: CA (occurrence: CA)
  Receive Date: 20230831
  Receipt Date: 20250605
  Transmission Date: 20250716
  Serious: Yes (Other)
  Sender: SANDOZ
  Company Number: CA-002147023-NVSC2022CA203089

PATIENT
  Age: 45 Year
  Sex: Female
  Weight: 67.12 kg

DRUGS (2)
  1. HYRIMOZ [Suspect]
     Active Substance: ADALIMUMAB-ADAZ
     Dosage: 40MG S.C.;WEEKLY, PRE-FILLED PEN
     Route: 058
  2. HYRIMOZ [Suspect]
     Active Substance: ADALIMUMAB-ADAZ
     Indication: Crohn^s disease
     Dosage: 40 MG, BIW
     Route: 058
     Dates: start: 20220610, end: 20240705

REACTIONS (22)
  - Uveitis [Unknown]
  - Eye swelling [Unknown]
  - Ocular hyperaemia [Unknown]
  - Psoriatic arthropathy [Unknown]
  - Musculoskeletal stiffness [Unknown]
  - Back pain [Unknown]
  - Discomfort [Unknown]
  - Limb mass [Unknown]
  - Constipation [Unknown]
  - Impaired work ability [Unknown]
  - Social problem [Unknown]
  - Pain [Unknown]
  - Arthralgia [Unknown]
  - Anal fissure [Unknown]
  - Fatigue [Unknown]
  - Abdominal pain [Unknown]
  - Therapeutic response shortened [Unknown]
  - Product dose omission issue [Unknown]
  - General physical health deterioration [Unknown]
  - Erythema nodosum [Unknown]
  - Scar inflammation [Unknown]
  - Off label use [Unknown]

NARRATIVE: CASE EVENT DATE: 20220906
